FAERS Safety Report 8837172 (Version 1)
Quarter: 2012Q4

REPORT INFORMATION
  Report Type: Spontaneous
  Country: US (occurrence: None)
  Receive Date: 20121011
  Receipt Date: 20121011
  Transmission Date: 20130627
  Serious: Yes (Hospitalization, Other)
  Sender: FDA-Public Use
  Company Number: 2012033533

PATIENT
  Age: 27 Year
  Sex: Female

DRUGS (1)
  1. HUMATE-P [Suspect]

REACTIONS (5)
  - Premature separation of placenta [None]
  - Caesarean section [None]
  - Postpartum haemorrhage [None]
  - Exposure during pregnancy [None]
  - Haemoglobin decreased [None]
